FAERS Safety Report 25824309 (Version 1)
Quarter: 2025Q3

REPORT INFORMATION
  Report Type: Spontaneous
  Country: CH (occurrence: CH)
  Receive Date: 20250919
  Receipt Date: 20250919
  Transmission Date: 20251021
  Serious: Yes (Hospitalization)
  Sender: MYLAN
  Company Number: None

PATIENT
  Age: 68 Year
  Sex: Male

DRUGS (44)
  1. ARIPIPRAZOLE [Suspect]
     Active Substance: ARIPIPRAZOLE
     Indication: Tourette^s disorder
     Dosage: 5 MILLIGRAM, QD (DAILY)
     Dates: start: 20250822, end: 20250827
  2. ARIPIPRAZOLE [Suspect]
     Active Substance: ARIPIPRAZOLE
     Dosage: 5 MILLIGRAM, QD (DAILY)
     Route: 065
     Dates: start: 20250822, end: 20250827
  3. ARIPIPRAZOLE [Suspect]
     Active Substance: ARIPIPRAZOLE
     Dosage: 5 MILLIGRAM, QD (DAILY)
     Route: 065
     Dates: start: 20250822, end: 20250827
  4. ARIPIPRAZOLE [Suspect]
     Active Substance: ARIPIPRAZOLE
     Dosage: 5 MILLIGRAM, QD (DAILY)
     Dates: start: 20250822, end: 20250827
  5. TAMBOCOR [Suspect]
     Active Substance: FLECAINIDE ACETATE
     Indication: Product used for unknown indication
     Dosage: 100 MILLIGRAM, QD (DAILY)
     Dates: end: 20250819
  6. TAMBOCOR [Suspect]
     Active Substance: FLECAINIDE ACETATE
     Dosage: 100 MILLIGRAM, QD (DAILY)
     Route: 065
     Dates: end: 20250819
  7. TAMBOCOR [Suspect]
     Active Substance: FLECAINIDE ACETATE
     Dosage: 100 MILLIGRAM, QD (DAILY)
     Route: 065
     Dates: end: 20250819
  8. TAMBOCOR [Suspect]
     Active Substance: FLECAINIDE ACETATE
     Dosage: 100 MILLIGRAM, QD (DAILY)
     Dates: end: 20250819
  9. RISPERDAL [Suspect]
     Active Substance: RISPERIDONE
     Indication: Tourette^s disorder
     Dosage: 2 MILLIGRAM, QD
     Dates: end: 2025
  10. RISPERDAL [Suspect]
     Active Substance: RISPERIDONE
     Dosage: 2 MILLIGRAM, QD
     Dates: end: 2025
  11. RISPERDAL [Suspect]
     Active Substance: RISPERIDONE
     Dosage: 2 MILLIGRAM, QD
     Route: 065
     Dates: end: 2025
  12. RISPERDAL [Suspect]
     Active Substance: RISPERIDONE
     Dosage: 2 MILLIGRAM, QD
     Route: 065
     Dates: end: 2025
  13. RISPERDAL [Suspect]
     Active Substance: RISPERIDONE
     Dosage: 1 MILLIGRAM, QD
     Dates: start: 2025, end: 202508
  14. RISPERDAL [Suspect]
     Active Substance: RISPERIDONE
     Dosage: 1 MILLIGRAM, QD
     Dates: start: 2025, end: 202508
  15. RISPERDAL [Suspect]
     Active Substance: RISPERIDONE
     Dosage: 1 MILLIGRAM, QD
     Route: 065
     Dates: start: 2025, end: 202508
  16. RISPERDAL [Suspect]
     Active Substance: RISPERIDONE
     Dosage: 1 MILLIGRAM, QD
     Route: 065
     Dates: start: 2025, end: 202508
  17. RISPERDAL [Suspect]
     Active Substance: RISPERIDONE
     Dosage: 2 MILLIGRAM, QD
     Dates: start: 202508, end: 20250820
  18. RISPERDAL [Suspect]
     Active Substance: RISPERIDONE
     Dosage: 2 MILLIGRAM, QD
     Route: 065
     Dates: start: 202508, end: 20250820
  19. RISPERDAL [Suspect]
     Active Substance: RISPERIDONE
     Dosage: 2 MILLIGRAM, QD
     Dates: start: 202508, end: 20250820
  20. RISPERDAL [Suspect]
     Active Substance: RISPERIDONE
     Dosage: 2 MILLIGRAM, QD
     Route: 065
     Dates: start: 202508, end: 20250820
  21. BACTRIM [Suspect]
     Active Substance: SULFAMETHOXAZOLE\TRIMETHOPRIM
     Indication: Product used for unknown indication
     Dosage: 160 MILLIGRAM, BID (TWICE DAILY)
     Dates: start: 20250823, end: 20250826
  22. BACTRIM [Suspect]
     Active Substance: SULFAMETHOXAZOLE\TRIMETHOPRIM
     Dosage: 160 MILLIGRAM, BID (TWICE DAILY)
     Route: 065
     Dates: start: 20250823, end: 20250826
  23. BACTRIM [Suspect]
     Active Substance: SULFAMETHOXAZOLE\TRIMETHOPRIM
     Dosage: 160 MILLIGRAM, BID (TWICE DAILY)
     Route: 065
     Dates: start: 20250823, end: 20250826
  24. BACTRIM [Suspect]
     Active Substance: SULFAMETHOXAZOLE\TRIMETHOPRIM
     Dosage: 160 MILLIGRAM, BID (TWICE DAILY)
     Dates: start: 20250823, end: 20250826
  25. CANDESARTAN [Concomitant]
     Active Substance: CANDESARTAN
     Dosage: 32 MILLIGRAM, QD
  26. CANDESARTAN [Concomitant]
     Active Substance: CANDESARTAN
     Dosage: 32 MILLIGRAM, QD
     Route: 065
  27. CANDESARTAN [Concomitant]
     Active Substance: CANDESARTAN
     Dosage: 32 MILLIGRAM, QD
     Route: 065
  28. CANDESARTAN [Concomitant]
     Active Substance: CANDESARTAN
     Dosage: 32 MILLIGRAM, QD
  29. Beloc [Concomitant]
     Dosage: 50 MILLIGRAM, QD (DAILY)
  30. Beloc [Concomitant]
     Dosage: 50 MILLIGRAM, QD (DAILY)
     Route: 065
  31. Beloc [Concomitant]
     Dosage: 50 MILLIGRAM, QD (DAILY)
     Route: 065
  32. Beloc [Concomitant]
     Dosage: 50 MILLIGRAM, QD (DAILY)
  33. XARELTO [Concomitant]
     Active Substance: RIVAROXABAN
     Dosage: 20 MILLIGRAM, QD (DAILY)
  34. XARELTO [Concomitant]
     Active Substance: RIVAROXABAN
     Dosage: 20 MILLIGRAM, QD (DAILY)
     Route: 065
  35. XARELTO [Concomitant]
     Active Substance: RIVAROXABAN
     Dosage: 20 MILLIGRAM, QD (DAILY)
     Route: 065
  36. XARELTO [Concomitant]
     Active Substance: RIVAROXABAN
     Dosage: 20 MILLIGRAM, QD (DAILY)
  37. XANAX [Concomitant]
     Active Substance: ALPRAZOLAM
     Dosage: 0.25 MILLIGRAM, QD (DAILY)
  38. XANAX [Concomitant]
     Active Substance: ALPRAZOLAM
     Dosage: 0.25 MILLIGRAM, QD (DAILY)
     Route: 065
  39. XANAX [Concomitant]
     Active Substance: ALPRAZOLAM
     Dosage: 0.25 MILLIGRAM, QD (DAILY)
     Route: 065
  40. XANAX [Concomitant]
     Active Substance: ALPRAZOLAM
     Dosage: 0.25 MILLIGRAM, QD (DAILY)
  41. EBASTINE [Concomitant]
     Active Substance: EBASTINE
  42. EBASTINE [Concomitant]
     Active Substance: EBASTINE
     Route: 065
  43. EBASTINE [Concomitant]
     Active Substance: EBASTINE
     Route: 065
  44. EBASTINE [Concomitant]
     Active Substance: EBASTINE

REACTIONS (3)
  - Inappropriate antidiuretic hormone secretion [Recovering/Resolving]
  - Hyponatraemia [Recovering/Resolving]
  - Electrocardiogram QT prolonged [Recovered/Resolved]

NARRATIVE: CASE EVENT DATE: 20250819
